FAERS Safety Report 8185094-2 (Version None)
Quarter: 2012Q1

REPORT INFORMATION
  Report Type: 
  Country: None (occurrence: None)
  Receive Date: 20120213
  Receipt Date: 20111028
  Transmission Date: 20120608
  Serious: Yes (Other)
  Sender: FDA-Public Use
  Company Number: E2020-09934-SPO-US

PATIENT
  Age: 91 Year
  Sex: Female

DRUGS (1)
  1. ARICEPT [Suspect]
     Indication: DEMENTIA
     Dosage: 20 MG ONCE A DAY, ORAL
     Route: 048
     Dates: start: 20110919

REACTIONS (1)
  - COMPLEX PARTIAL SEIZURES [None]
